FAERS Safety Report 4371937-7 (Version None)
Quarter: 2004Q2

REPORT INFORMATION
  Report Type: 
  Country: None (occurrence: None)
  Receive Date: 20040603
  Receipt Date: 20040603
  Transmission Date: 20050107
  Serious: Yes (Life-Threatening, Hospitalization)
  Sender: FDA-Public Use
  Company Number: None

PATIENT
  Sex: Female
  Weight: 104.7809 kg

DRUGS (4)
  1. CISPLATIN [Suspect]
     Indication: NON-SMALL CELL LUNG CANCER
     Dosage: 85 MG ON DAY #1, 8, 29+36 IV
     Route: 042
     Dates: start: 20031027
  2. CISPLATIN [Suspect]
     Indication: NON-SMALL CELL LUNG CANCER
     Dosage: 85 MG ON DAY #1, 8, 29+36 IV
     Route: 042
     Dates: start: 20031117
  3. CISPLATIN [Suspect]
     Indication: NON-SMALL CELL LUNG CANCER
     Dosage: 85 MG ON DAY #1, 8, 29+36 IV
     Route: 042
     Dates: start: 20031124
  4. ETOPOSIDE [Suspect]
     Dosage: DAILY X 5 DAYS (85 MG IV)
     Route: 042
     Dates: start: 20031117, end: 20031121

REACTIONS (8)
  - ASTHENIA [None]
  - DEEP VEIN THROMBOSIS [None]
  - DYSPNOEA [None]
  - FATIGUE [None]
  - HYPERTENSION [None]
  - LABORATORY TEST ABNORMAL [None]
  - PERICARDIAL EFFUSION [None]
  - PLEURAL EFFUSION [None]
